FAERS Safety Report 6768331-8 (Version None)
Quarter: 2010Q2

REPORT INFORMATION
  Report Type: 
  Country: None (occurrence: None)
  Receive Date: 20100610
  Receipt Date: 20100528
  Transmission Date: 20101027
  Serious: No
  Sender: FDA-Public Use
  Company Number: 009916

PATIENT
  Age: 78 Year
  Sex: Female

DRUGS (3)
  1. CILOSTAZOL [Suspect]
     Indication: INTERMITTENT CLAUDICATION
     Dosage: 200 MG, DAILY DOSE ORAL
     Route: 048
     Dates: start: 20100209, end: 20100210
  2. BRINZOLAMIDE (BRINZOLAMIDE) [Suspect]
     Indication: GLAUCOMA
     Dosage: OPHTHALMIC
     Route: 047
     Dates: start: 20050101
  3. TIMOLOL MALEATE [Suspect]
     Indication: GLAUCOMA
     Dosage: OPHTHALMIC
     Route: 047
     Dates: start: 20040101

REACTIONS (5)
  - DIZZINESS [None]
  - HYPERHIDROSIS [None]
  - PALPITATIONS [None]
  - SINUS ARRHYTHMIA [None]
  - SUPRAVENTRICULAR EXTRASYSTOLES [None]
